FAERS Safety Report 8198189-4 (Version None)
Quarter: 2012Q1

REPORT INFORMATION
  Report Type: 
  Country: None (occurrence: None)
  Receive Date: 20120309
  Receipt Date: 20111214
  Transmission Date: 20120608
  Serious: No
  Sender: FDA-Public Use
  Company Number: US-AMGEN-USASP2011066674

PATIENT
  Age: 76 Year
  Sex: Female
  Weight: 43.1 kg

DRUGS (5)
  1. CITRACAL + D [Concomitant]
  2. SENIOR ONE A DAY VITAMIN [Concomitant]
  3. PROLIA [Suspect]
     Indication: OSTEOPOROSIS POSTMENOPAUSAL
     Dosage: 60 MG, Q6MO
     Dates: start: 20111212
  4. VITAMIN D [Concomitant]
  5. ACTOS [Concomitant]

REACTIONS (1)
  - PAIN IN EXTREMITY [None]
